FAERS Safety Report 5469479-0 (Version None)
Quarter: 2007Q3

REPORT INFORMATION
  Report Type: 
  Country: None (occurrence: None)
  Receive Date: 20070925
  Receipt Date: 20070925
  Transmission Date: 20080115
  Serious: Yes (Other)
  Sender: FDA-Public Use
  Company Number: None

PATIENT
  Age: 60 Year
  Sex: Male
  Weight: 108.8633 kg

DRUGS (1)
  1. PRE-FILLED NORMAL SALINE FLUSH .09% BD [Suspect]
     Dosage: 10ML

REACTIONS (2)
  - DYSGEUSIA [None]
  - INFUSION RELATED REACTION [None]
